FAERS Safety Report 6299672-9 (Version None)
Quarter: 2009Q3

REPORT INFORMATION
  Report Type: 
  Country: None (occurrence: None)
  Receive Date: 20090805
  Receipt Date: 20090805
  Transmission Date: 20100115
  Serious: Yes (Life-Threatening)
  Sender: FDA-Public Use
  Company Number: None

PATIENT
  Age: 77 Year
  Sex: Male
  Weight: 72 kg

DRUGS (1)
  1. FENTANYL-75 [Suspect]
     Indication: PAIN
     Dosage: FENTANYL 75MCG EVERY 72 H TOPICAL X1
     Route: 061
     Dates: start: 20090329

REACTIONS (1)
  - UNRESPONSIVE TO STIMULI [None]
